FAERS Safety Report 8576204-3 (Version None)
Quarter: 2012Q3

REPORT INFORMATION
  Report Type: 
  Country: None (occurrence: None)
  Receive Date: 20120807
  Receipt Date: 20120807
  Transmission Date: 20120928
  Serious: Yes (Other)
  Sender: FDA-Public Use
  Company Number: US-ABBOTT-12P-163-0962214-00

PATIENT
  Age: 29 Year
  Sex: Female

DRUGS (8)
  1. IMURAN [Concomitant]
     Indication: CROHN'S DISEASE
     Dosage: 3 PILLS DAILY
  2. HUMIRA [Suspect]
     Dates: start: 20120401
  3. HYOSCYAMINE SULFATE [Concomitant]
     Indication: CROHN'S DISEASE
     Route: 048
  4. HUMIRA [Suspect]
     Indication: CROHN'S DISEASE
     Dates: start: 20080101
  5. COLESTIPOL HYDROCHLORIDE [Concomitant]
     Indication: CROHN'S DISEASE
  6. IMODIUM [Concomitant]
     Indication: DIARRHOEA
  7. COLESTIPOL HYDROCHLORIDE [Concomitant]
     Indication: BLOOD CHOLESTEROL INCREASED
     Dosage: AT BEDTIME
     Route: 048
  8. HUMIRA [Suspect]
     Dates: start: 20110801, end: 20120401

REACTIONS (7)
  - INJECTION SITE PAIN [None]
  - ABDOMINAL PAIN UPPER [None]
  - CROHN'S DISEASE [None]
  - ILEECTOMY [None]
  - ANAL FISTULA [None]
  - CRYING [None]
  - DIARRHOEA [None]
